FAERS Safety Report 13260309 (Version 1)
Quarter: 2017Q1

REPORT INFORMATION
  Report Type: Spontaneous
  Country: FR (occurrence: FR)
  Receive Date: 20170222
  Receipt Date: 20170222
  Transmission Date: 20170428
  Serious: Yes (Hospitalization)
  Sender: FDA-Public Use
  Company Number: FR-ORION CORPORATION ORION PHARMA-TREX2017-0577

PATIENT
  Age: 54 Year
  Sex: Male

DRUGS (4)
  1. IMETH [Suspect]
     Active Substance: METHOTREXATE SODIUM
     Route: 048
  2. REMICADE [Suspect]
     Active Substance: INFLIXIMAB
     Route: 042
     Dates: start: 201101
  3. SPECIAFOLDINE [Concomitant]
     Active Substance: FOLIC ACID
     Route: 065
  4. METFORMIN [Concomitant]
     Active Substance: METFORMIN HYDROCHLORIDE
     Indication: DIABETES MELLITUS
     Route: 065

REACTIONS (6)
  - Streptococcus test positive [Unknown]
  - Osteitis [Recovering/Resolving]
  - Enterobacter test positive [Unknown]
  - Staphylococcus test positive [Unknown]
  - Osteoarthritis [Unknown]
  - Infected fistula [Unknown]

NARRATIVE: CASE EVENT DATE: 201611
